FAERS Safety Report 14339675 (Version 1)
Quarter: 2017Q4

REPORT INFORMATION
  Report Type: Spontaneous
  Country: US (occurrence: US)
  Receive Date: 20171230
  Receipt Date: 20171230
  Transmission Date: 20180321
  Serious: Yes (Death)
  Sender: FDA-Public Use
  Company Number: PHEH2017US042204

PATIENT
  Age: 39 Year
  Sex: Male

DRUGS (2)
  1. MEKINIST [Suspect]
     Active Substance: TRAMETINIB DIMETHYL SULFOXIDE
     Indication: NEUROENDOCRINE TUMOUR
     Dosage: 2 MG, QD
     Route: 048
     Dates: start: 20171204
  2. TAFINLAR [Suspect]
     Active Substance: DABRAFENIB MESYLATE
     Indication: NEUROENDOCRINE TUMOUR
     Dosage: 150 MG, QD
     Route: 048
     Dates: start: 20171204

REACTIONS (1)
  - Death [Fatal]

NARRATIVE: CASE EVENT DATE: 20171214
